FAERS Safety Report 7441618-1 (Version None)
Quarter: 2011Q2

REPORT INFORMATION
  Report Type: 
  Country: None (occurrence: None)
  Receive Date: 20110428
  Receipt Date: 20110425
  Transmission Date: 20111010
  Serious: No
  Sender: FDA-Public Use
  Company Number: US-PFIZER INC-2011089015

PATIENT
  Sex: Female
  Weight: 74.83 kg

DRUGS (2)
  1. SPIRONOLACTONE [Suspect]
     Indication: ACNE
     Dosage: 100 MG, 2X/DAY
     Route: 048
     Dates: start: 20110418, end: 20110425
  2. SPIRONOLACTONE [Suspect]
     Indication: SEBORRHOEA

REACTIONS (1)
  - RASH PRURITIC [None]
